FAERS Safety Report 8904069 (Version 3)
Quarter: 2012Q4

REPORT INFORMATION
  Report Type: 
  Country: US (occurrence: US)
  Receive Date: 20121113
  Receipt Date: 20121212
  Transmission Date: 20130627
  Serious: Yes (Disabling, Other)
  Sender: FDA-Public Use
  Company Number: US-009507513-1211USA003761

PATIENT

DRUGS (10)
  1. EMEND FOR INJECTION [Suspect]
     Indication: PROPHYLAXIS OF NAUSEA AND VOMITING
     Dosage: 150 mg, UNK
     Dates: start: 20110111
  2. EMEND FOR INJECTION [Suspect]
     Dosage: 150 mg, UNK
     Dates: start: 20110126, end: 20110126
  3. DOXORUBICIN [Suspect]
     Indication: BREAST CANCER
     Dosage: 92 mg
     Dates: start: 20110111, end: 20110111
  4. DOXORUBICIN [Suspect]
     Dosage: 92 mg
     Dates: start: 20110126, end: 20110126
  5. CYTOXAN [Concomitant]
     Indication: BREAST CANCER
     Dosage: 92 mg, UNK
     Dates: start: 20110111, end: 20110111
  6. CYTOXAN [Concomitant]
     Dosage: 92 mg, UNK
     Dates: start: 20110126, end: 20110126
  7. ALOXI [Concomitant]
     Dosage: 0.25 mg, UNK
     Dates: start: 20110111, end: 20110111
  8. ALOXI [Concomitant]
     Dosage: 0.25 mg, UNK
     Dates: start: 20110126, end: 20110126
  9. DECADRON (DEXAMETHASONE) [Concomitant]
     Dosage: 12 mg, UNK
     Dates: start: 20110111
  10. DECADRON (DEXAMETHASONE) [Concomitant]
     Dosage: 12 mg, UNK
     Dates: start: 20110126, end: 20110126

REACTIONS (9)
  - Injection site phlebitis [Unknown]
  - Infusion site pain [Unknown]
  - Infusion site pruritus [Unknown]
  - Nausea [Unknown]
  - Constipation [Unknown]
  - Wrong technique in drug usage process [Unknown]
  - Uterine haemorrhage [Unknown]
  - Salpingo-oophorectomy bilateral [Unknown]
  - Hysterectomy [Unknown]
